FAERS Safety Report 25060308 (Version 1)
Quarter: 2025Q1

REPORT INFORMATION
  Report Type: Spontaneous
  Country: US (occurrence: US)
  Receive Date: 20250310
  Receipt Date: 20250310
  Transmission Date: 20250409
  Serious: No
  Sender: SANOFI AVENTIS
  Company Number: US-SA-2025SA069764

PATIENT
  Sex: Male

DRUGS (14)
  1. DUPIXENT [Suspect]
     Active Substance: DUPILUMAB
     Indication: Asthma
     Dosage: 300 MG, QOW
     Route: 058
  2. ADVAIR HFA [Concomitant]
     Active Substance: FLUTICASONE PROPIONATE\SALMETEROL XINAFOATE
  3. ALBUTEROL SULFATE [Concomitant]
     Active Substance: ALBUTEROL SULFATE
  4. ATORVASTATIN [Concomitant]
     Active Substance: ATORVASTATIN
  5. LOSARTAN POTASSIUM [Concomitant]
     Active Substance: LOSARTAN POTASSIUM
  6. NAPROXEN [Concomitant]
     Active Substance: NAPROXEN
  7. Probiata [Concomitant]
  8. SERTRALINE HYDROCHLORIDE [Concomitant]
     Active Substance: SERTRALINE HYDROCHLORIDE
  9. VITAMIN A [Concomitant]
     Active Substance: VITAMIN A
  10. VITAMIN D NOS [Concomitant]
     Active Substance: CHOLECALCIFEROL\ERGOCALCIFEROL
  11. ALBUTEROL SULFATE [Concomitant]
     Active Substance: ALBUTEROL SULFATE
  12. MONTELUKAST [Concomitant]
     Active Substance: MONTELUKAST
  13. SPIRIVA [Concomitant]
     Active Substance: TIOTROPIUM BROMIDE MONOHYDRATE
  14. TRELEGY ELLIPTA [Concomitant]
     Active Substance: FLUTICASONE FUROATE\UMECLIDINIUM BROMIDE\VILANTEROL TRIFENATATE

REACTIONS (1)
  - Inappropriate schedule of product administration [Unknown]
